FAERS Safety Report 8323119-1 (Version None)
Quarter: 2012Q2

REPORT INFORMATION
  Report Type: 
  Country: None (occurrence: None)
  Receive Date: 20120430
  Receipt Date: 20120425
  Transmission Date: 20120825
  Serious: Yes (Hospitalization, Other)
  Sender: FDA-Public Use
  Company Number: PHHY2011DK109815

PATIENT
  Sex: Female

DRUGS (1)
  1. GILENYA [Suspect]
     Indication: MULTIPLE SCLEROSIS
     Dosage: 0.5 MG, QD
     Route: 048
     Dates: start: 20111206, end: 20111215

REACTIONS (9)
  - CONVULSION [None]
  - DISTURBANCE IN ATTENTION [None]
  - NUCLEAR MAGNETIC RESONANCE IMAGING BRAIN ABNORMAL [None]
  - PARTIAL SEIZURES [None]
  - MEMORY IMPAIRMENT [None]
  - STATUS EPILEPTICUS [None]
  - ELECTROENCEPHALOGRAM ABNORMAL [None]
  - MENTAL DISORDER [None]
  - CONFUSIONAL STATE [None]
